FAERS Safety Report 6419026-1 (Version None)
Quarter: 2009Q4

REPORT INFORMATION
  Report Type: 
  Country: None (occurrence: None)
  Receive Date: 20091028
  Receipt Date: 20091028
  Transmission Date: 20100525
  Serious: Yes (Other)
  Sender: FDA-Public Use
  Company Number: None

PATIENT
  Age: 4 Year
  Sex: Female
  Weight: 17.2367 kg

DRUGS (1)
  1. JUNIOR PAIN RELIEF 160 MG PER TABLET CVS -STORE-BRAND [Suspect]
     Indication: PYREXIA
     Dosage: 240 MG 1X PO
     Route: 048
     Dates: start: 20091024, end: 20091024

REACTIONS (7)
  - ABNORMAL BEHAVIOUR [None]
  - AGITATION [None]
  - HYPERSENSITIVITY [None]
  - PYREXIA [None]
  - REGURGITATION [None]
  - RETCHING [None]
  - VOMITING [None]
